FAERS Safety Report 10170538 (Version 1)
Quarter: 2014Q2

REPORT INFORMATION
  Report Type: Spontaneous
  Country: FR (occurrence: FR)
  Receive Date: 20140513
  Receipt Date: 20140513
  Transmission Date: 20141212
  Serious: Yes (Other)
  Sender: FDA-Public Use
  Company Number: FR-GILEAD-2014-0102135

PATIENT
  Sex: Male

DRUGS (7)
  1. TRUVADA [Suspect]
     Indication: HIV INFECTION
     Dosage: UNK
     Route: 048
     Dates: start: 20100127, end: 20131217
  2. NORVIR [Suspect]
     Indication: HIV INFECTION
     Dosage: UNK
     Route: 048
     Dates: start: 20011010, end: 20131217
  3. NORVIR [Suspect]
     Dosage: UNK
     Route: 048
     Dates: start: 19980213, end: 19990819
  4. PREZISTA [Suspect]
     Indication: HIV INFECTION
     Dosage: UNK
     Route: 048
     Dates: start: 20100127, end: 20131217
  5. LIPANTHYL [Concomitant]
  6. TEMESTA                            /00273201/ [Concomitant]
  7. UVEDOSE [Concomitant]

REACTIONS (1)
  - Osteonecrosis [Recovered/Resolved with Sequelae]
